FAERS Safety Report 4504577-7 (Version None)
Quarter: 2004Q4

REPORT INFORMATION
  Report Type: 
  Country: None (occurrence: None)
  Receive Date: 20041118
  Receipt Date: 20041116
  Transmission Date: 20050328
  Serious: Yes (Other)
  Sender: FDA-Public Use
  Company Number: PHEH2004US12354

PATIENT
  Age: 83 Year
  Sex: Male

DRUGS (5)
  1. GENTEAL GEL (NVO) [Suspect]
     Indication: KERATOCONJUNCTIVITIS SICCA
     Dosage: UNK GTT, QHS
     Dates: start: 20041101
  2. COZAAR [Concomitant]
     Indication: HYPERTENSION
  3. AMLODIPINE [Concomitant]
     Indication: HYPERTENSION
  4. ACETYLSALICYLIC ACID [Concomitant]
     Dosage: 81 MG, UNK
  5. PANTOPRAZOLE [Concomitant]

REACTIONS (1)
  - BLOOD PRESSURE INCREASED [None]
